FAERS Safety Report 9989387 (Version 3)
Quarter: 2014Q1

REPORT INFORMATION
  Report Type: Spontaneous
  Country: JP (occurrence: JP)
  Receive Date: 20140310
  Receipt Date: 20140327
  Transmission Date: 20141002
  Serious: Yes (Death)
  Sender: FDA-Public Use
  Company Number: JP-PFIZER INC-2014063517

PATIENT
  Sex: Male

DRUGS (2)
  1. VFEND [Suspect]
     Dosage: 300 MG, 1X/DAY
     Route: 042
  2. MICAFUNGIN SODIUM [Concomitant]

REACTIONS (2)
  - Completed suicide [Fatal]
  - Mental disorder [Unknown]
